FAERS Safety Report 8815601 (Version 1)
Quarter: 2012Q4

REPORT INFORMATION
  Report Type: 
  Country: US (occurrence: US)
  Receive Date: 20120928
  Receipt Date: 20120928
  Transmission Date: 20130627
  Serious: Yes (Other)
  Sender: FDA-Public Use
  Company Number: US-BRISTOL-MYERS SQUIBB COMPANY-16969503

PATIENT
  Sex: Female

DRUGS (2)
  1. ABILIFY [Suspect]
     Dates: start: 2002
  2. CYMBALTA [Suspect]

REACTIONS (7)
  - Staphylococcal scalded skin syndrome [Unknown]
  - Wound [Unknown]
  - Thermal burn [Unknown]
  - Vascular injury [Unknown]
  - Madarosis [Unknown]
  - Alopecia [Unknown]
  - Vomiting [Unknown]
